FAERS Safety Report 5726027-5 (Version None)
Quarter: 2008Q2

REPORT INFORMATION
  Report Type: 
  Country: None (occurrence: None)
  Receive Date: 20080502
  Receipt Date: 20080421
  Transmission Date: 20081010
  Serious: Yes (Other)
  Sender: FDA-Public Use
  Company Number: US-AMGEN-QUU275494

PATIENT
  Sex: Female

DRUGS (1)
  1. ENBREL [Suspect]
     Indication: RHEUMATOID ARTHRITIS
     Route: 058
     Dates: start: 20050101, end: 20070901

REACTIONS (7)
  - ARTHRITIS [None]
  - CROHN'S DISEASE [None]
  - FOOD ALLERGY [None]
  - HEADACHE [None]
  - INJECTION SITE IRRITATION [None]
  - LATEX ALLERGY [None]
  - SEASONAL ALLERGY [None]
